FAERS Safety Report 7764723-9 (Version None)
Quarter: 2011Q3

REPORT INFORMATION
  Report Type: 
  Country: None (occurrence: None)
  Receive Date: 20110916
  Receipt Date: 20110906
  Transmission Date: 20111222
  Serious: Yes (Hospitalization)
  Sender: FDA-Public Use
  Company Number: TIF2011A00120

PATIENT
  Age: 65 Year
  Sex: Female

DRUGS (4)
  1. ANAFRANIL [Suspect]
     Dosage: 750 MG (75 MG)
     Route: 048
     Dates: start: 20110730, end: 20110730
  2. ACTOS [Suspect]
     Indication: PRODUCT USED FOR UNKNOWN INDICATION
     Dosage: 420 MG (15 MG)
     Route: 048
     Dates: start: 20110730, end: 20110730
  3. RISPERDAL [Suspect]
     Dosage: 20 MG (2 MG)
     Route: 048
     Dates: start: 20110730, end: 20110730
  4. MICARDIS [Suspect]
     Dosage: 1120 MG (80 MG)
     Route: 048
     Dates: start: 20110730, end: 20110730

REACTIONS (2)
  - OVERDOSE [None]
  - SUICIDE ATTEMPT [None]
